FAERS Safety Report 19191240 (Version 1)
Quarter: 2021Q2

REPORT INFORMATION
  Report Type: Spontaneous
  Country: CA (occurrence: CA)
  Receive Date: 20210428
  Receipt Date: 20210428
  Transmission Date: 20210717
  Serious: Yes (Hospitalization)
  Sender: FDA-Public Use
  Company Number: NVSC2021CA090731

PATIENT
  Age: 83 Year
  Sex: Male

DRUGS (2)
  1. TEVA IBUPROFEN [Suspect]
     Active Substance: IBUPROFEN
     Indication: DEPRESSION
     Dosage: 150 MG, QD
     Route: 048
  2. SANDOZ TELMISARTAN [Suspect]
     Active Substance: TELMISARTAN
     Indication: HYPERTENSION
     Dosage: 80 MG, QD
     Route: 048

REACTIONS (1)
  - Hyponatraemia [Recovered/Resolved]
